FAERS Safety Report 18542543 (Version 1)
Quarter: 2020Q4

REPORT INFORMATION
  Report Type: Spontaneous
  Country: JP (occurrence: JP)
  Receive Date: 20201125
  Receipt Date: 20201125
  Transmission Date: 20210114
  Serious: Yes (Other)
  Sender: FDA-Public Use
  Company Number: JP-GYP-000016

PATIENT
  Age: 58 Year

DRUGS (4)
  1. INTERFERON [Suspect]
     Active Substance: INTERFERON
     Indication: ERDHEIM-CHESTER DISEASE
     Route: 065
  2. PREDNISONE. [Suspect]
     Active Substance: PREDNISONE
     Indication: DIABETES INSIPIDUS
     Route: 065
  3. INTERFERON [Suspect]
     Active Substance: INTERFERON
     Indication: DIABETES INSIPIDUS
     Route: 065
  4. PREDNISONE. [Suspect]
     Active Substance: PREDNISONE
     Indication: ERDHEIM-CHESTER DISEASE
     Route: 065

REACTIONS (2)
  - Product use in unapproved indication [Unknown]
  - Cerebral haemorrhage [Recovering/Resolving]
